FAERS Safety Report 5711160-4 (Version None)
Quarter: 2008Q2

REPORT INFORMATION
  Report Type: 
  Country: None (occurrence: None)
  Receive Date: 20080415
  Receipt Date: 20080404
  Transmission Date: 20081010
  Serious: Yes (Life-Threatening, Other)
  Sender: FDA-Public Use
  Company Number: 18909

PATIENT
  Age: 3 Year
  Sex: Female

DRUGS (9)
  1. METHOTREXATE [Suspect]
     Indication: MEDULLOBLASTOMA
     Dosage: 400 MG/KG PER_CYCLE
  2. METHOTREXATE [Suspect]
     Indication: MEDULLOBLASTOMA
     Dosage: 200 MG/KG PER_CYCLE
  3. VINCRISTINE [Concomitant]
  4. CISPLATIN [Concomitant]
  5. FLUCONAZOLE [Concomitant]
  6. ETOPOSIDE [Concomitant]
  7. CYCLOPHOSPHAMIDE [Concomitant]
  8. TEMOZOLOMIDE [Concomitant]
  9. PARENTERAL [Concomitant]

REACTIONS (12)
  - ALANINE AMINOTRANSFERASE INCREASED [None]
  - ASCITES [None]
  - BLOOD BILIRUBIN INCREASED [None]
  - BONE MARROW FAILURE [None]
  - DRUG LEVEL INCREASED [None]
  - DRUG TOXICITY [None]
  - FEBRILE NEUTROPENIA [None]
  - HEPATOMEGALY [None]
  - MUCOSAL INFLAMMATION [None]
  - PROTHROMBIN TIME PROLONGED [None]
  - RENAL FAILURE ACUTE [None]
  - VOMITING [None]
